FAERS Safety Report 19864834 (Version 1)
Quarter: 2021Q3

REPORT INFORMATION
  Report Type: Spontaneous
  Country: HU (occurrence: HU)
  Receive Date: 20210921
  Receipt Date: 20210921
  Transmission Date: 20211014
  Serious: Yes (Other)
  Sender: FDA-Public Use
  Company Number: HU-PFIZER INC-202101181726

PATIENT
  Sex: Male

DRUGS (3)
  1. METHYLPREDNISOLONE. [Suspect]
     Active Substance: METHYLPREDNISOLONE
     Indication: PLEUROPARENCHYMAL FIBROELASTOSIS
     Dosage: 4 MG, DAILY
  2. OXYGEN. [Concomitant]
     Active Substance: OXYGEN
     Indication: PLEUROPARENCHYMAL FIBROELASTOSIS
  3. NINTEDANIB [Suspect]
     Active Substance: NINTEDANIB
     Indication: PLEUROPARENCHYMAL FIBROELASTOSIS

REACTIONS (2)
  - Weight decreased [Unknown]
  - Gastrointestinal disorder [Unknown]
